FAERS Safety Report 9958624 (Version 2)
Quarter: 2014Q1

REPORT INFORMATION
  Report Type: Spontaneous
  Country: GB (occurrence: GB)
  Receive Date: 20140305
  Receipt Date: 20140305
  Transmission Date: 20141002
  Serious: Yes (Other)
  Sender: FDA-Public Use
  Company Number: GB-ROCHE-1353401

PATIENT
  Age: 67 Year
  Sex: Female
  Weight: 52.2 kg

DRUGS (11)
  1. MIRCERA [Suspect]
     Indication: NEPHROGENIC ANAEMIA
     Route: 058
  2. MIRCERA [Suspect]
     Route: 065
     Dates: start: 20130620
  3. ALFACALCIDOL [Concomitant]
     Indication: RENAL FAILURE CHRONIC
     Route: 065
  4. AMLODIPINE [Concomitant]
     Indication: RENAL FAILURE CHRONIC
     Route: 065
  5. INDAPAMIDE [Concomitant]
     Indication: RENAL FAILURE CHRONIC
     Route: 065
  6. LISINOPRIL [Concomitant]
     Indication: HYPERTENSION
     Route: 065
  7. SIMVASTATIN [Concomitant]
     Indication: HYPERTENSION
     Route: 065
  8. TIOTROPIUM [Concomitant]
     Indication: CHRONIC OBSTRUCTIVE PULMONARY DISEASE
     Route: 065
  9. BUDESONIDE [Concomitant]
     Indication: CHRONIC OBSTRUCTIVE PULMONARY DISEASE
     Route: 065
  10. FORMOTEROL [Concomitant]
     Indication: CHRONIC OBSTRUCTIVE PULMONARY DISEASE
     Route: 065
  11. FERROUS SULPHATE [Concomitant]
     Route: 065

REACTIONS (2)
  - Haemoglobin increased [Recovering/Resolving]
  - Haemoglobin decreased [Recovering/Resolving]
